FAERS Safety Report 14670699 (Version 2)
Quarter: 2018Q2

REPORT INFORMATION
  Report Type: Spontaneous
  Country: US (occurrence: US)
  Receive Date: 20180322
  Receipt Date: 20180405
  Transmission Date: 20180711
  Serious: Yes (Other)
  Sender: FDA-Public Use
  Company Number: PHHY2018US038723

PATIENT
  Age: 77 Year
  Sex: Female
  Weight: 58.2 kg

DRUGS (8)
  1. BSS PLUS [Suspect]
     Active Substance: CALCIUM CHLORIDE\DEXTROSE\MAGNESIUM CHLORIDE\OXIGLUTATIONE\POTASSIUM CHLORIDE\SODIUM BICARBONATE\SODIUM CHLORIDE\SODIUM PHOSPHATE\SODIUM PHOSPHATE, DIBASIC
     Indication: PRODUCT USED FOR UNKNOWN INDICATION
     Dosage: UNK
     Route: 031
     Dates: start: 20180226, end: 20180226
  2. EPINEPHRINE. [Suspect]
     Active Substance: EPINEPHRINE
     Indication: PRODUCT USED FOR UNKNOWN INDICATION
     Dosage: UNK
     Route: 047
     Dates: start: 20180226, end: 20180226
  3. BETADINE [Concomitant]
     Active Substance: POVIDONE-IODINE
     Indication: PREOPERATIVE CARE
     Route: 065
  4. DUOVISC [Concomitant]
     Active Substance: CHONDROITIN SULFATE A\HYALURONATE SODIUM
     Indication: PRODUCT USED FOR UNKNOWN INDICATION
     Dosage: UNK
     Route: 047
     Dates: start: 20180226
  5. PHENYLEPHRINE [Concomitant]
     Active Substance: PHENYLEPHRINE\PHENYLEPHRINE HYDROCHLORIDE
     Indication: PREOPERATIVE CARE
     Route: 047
  6. CYCLOGYL [Concomitant]
     Active Substance: CYCLOPENTOLATE HYDROCHLORIDE
     Indication: PREOPERATIVE CARE
     Route: 047
  7. TETRACAINE. [Concomitant]
     Active Substance: TETRACAINE
     Indication: PREOPERATIVE CARE
     Route: 047
  8. LIDOCAINE. [Concomitant]
     Active Substance: LIDOCAINE
     Indication: PRODUCT USED FOR UNKNOWN INDICATION
     Route: 047

REACTIONS (4)
  - Wrong technique in product usage process [Unknown]
  - Visual acuity reduced [Unknown]
  - Eye inflammation [Unknown]
  - Toxic anterior segment syndrome [Unknown]

NARRATIVE: CASE EVENT DATE: 20180226
